FAERS Safety Report 23020530 (Version 1)
Quarter: 2023Q4

REPORT INFORMATION
  Report Type: Spontaneous
  Country: US (occurrence: None)
  Receive Date: 20231002
  Receipt Date: 20231002
  Transmission Date: 20240109
  Serious: No
  Sender: FDA-Public Use
  Company Number: None

PATIENT
  Age: 75 Year
  Sex: Male

DRUGS (1)
  1. LISINOPRIL [Suspect]
     Active Substance: LISINOPRIL
     Indication: Hypertension
     Dosage: 1 DF DOSAGE FORM DAILY ORAL
     Route: 048

REACTIONS (2)
  - Dyspnoea [None]
  - Oesophageal pain [None]

NARRATIVE: CASE EVENT DATE: 20230908
